FAERS Safety Report 7253695-1 (Version None)
Quarter: 2011Q1

REPORT INFORMATION
  Report Type: 
  Country: None (occurrence: None)
  Receive Date: 20110129
  Receipt Date: 20100211
  Transmission Date: 20110831
  Serious: Yes (Hospitalization)
  Sender: FDA-Public Use
  Company Number: US-ABBOTT-10P-163-0623483-00

PATIENT
  Sex: Female
  Weight: 68.1 kg

DRUGS (2)
  1. MULTIPLE UNLISTED CONCOMITANTS [Concomitant]
     Indication: PRODUCT USED FOR UNKNOWN INDICATION
  2. HUMIRA [Suspect]
     Indication: RHEUMATOID ARTHRITIS
     Route: 058
     Dates: start: 20040101, end: 20091201

REACTIONS (2)
  - INJURY [None]
  - LOWER LIMB FRACTURE [None]
